FAERS Safety Report 6576611-4 (Version None)
Quarter: 2010Q1

REPORT INFORMATION
  Report Type: 
  Country: None (occurrence: None)
  Receive Date: 20100210
  Receipt Date: 20100201
  Transmission Date: 20100710
  Serious: Yes (Other)
  Sender: FDA-Public Use
  Company Number: US-ASTRAZENECA-2010SE04402

PATIENT
  Age: 64 Year
  Sex: Female
  Weight: 59 kg

DRUGS (19)
  1. SEROQUEL [Suspect]
     Route: 048
     Dates: end: 20091109
  2. NEURONTIN [Suspect]
     Indication: TEMPORAL LOBE EPILEPSY
     Route: 048
     Dates: start: 20091020
  3. NEURONTIN [Suspect]
     Route: 048
     Dates: start: 20091027, end: 20091028
  4. NEURONTIN [Suspect]
     Route: 048
     Dates: start: 20091028, end: 20091028
  5. NEURONTIN [Suspect]
     Route: 048
     Dates: start: 20091031
  6. NEURONTIN [Suspect]
     Route: 048
     Dates: start: 20091105
  7. GEODON [Suspect]
     Indication: CONVULSION
     Dosage: 40-60 MG DAILY
     Route: 048
     Dates: start: 20080101
  8. GEODON [Suspect]
     Indication: PARANOIA
     Dosage: 40-60 MG DAILY
     Route: 048
     Dates: start: 20080101
  9. GEODON [Suspect]
     Route: 048
     Dates: start: 20091020
  10. GEODON [Suspect]
     Route: 048
     Dates: start: 20091020
  11. GEODON [Suspect]
     Route: 048
     Dates: start: 20091001
  12. GEODON [Suspect]
     Route: 048
     Dates: start: 20091001
  13. GEODON [Suspect]
     Route: 048
     Dates: start: 20091031
  14. GEODON [Suspect]
     Route: 048
     Dates: start: 20091031
  15. KLONOPIN [Suspect]
     Dosage: 0.5 MG 1/8 AS NEEDED.
     Route: 065
  16. KLONOPIN [Suspect]
     Route: 065
     Dates: start: 20090928, end: 20090928
  17. LEXAPRO [Concomitant]
  18. COUMADIN [Concomitant]
     Indication: HYPERCOAGULATION
     Dosage: 2 OR 2.5 MG DAILY
  19. COUMADIN [Concomitant]

REACTIONS (6)
  - ANXIETY [None]
  - DEPRESSION [None]
  - ELECTROENCEPHALOGRAM ABNORMAL [None]
  - MOROSE [None]
  - PSYCHOMOTOR HYPERACTIVITY [None]
  - SLEEP DISORDER [None]
